FAERS Safety Report 9167722 (Version 1)
Quarter: 2013Q1

REPORT INFORMATION
  Report Type: Spontaneous
  Country: US (occurrence: US)
  Receive Date: 20130318
  Receipt Date: 20130318
  Transmission Date: 20140127
  Serious: No
  Sender: FDA-Public Use
  Company Number: US-PFIZER INC-2013086309

PATIENT
  Age: 62 Year
  Sex: Male

DRUGS (8)
  1. SUTENT [Suspect]
     Indication: RENAL CELL CARCINOMA
     Dosage: 50 MG, UNK
     Dates: start: 20130110
  2. ALLOPURINOL [Concomitant]
     Dosage: UNK
  3. FISH OIL [Concomitant]
     Dosage: UNK
  4. GABAPENTIN [Concomitant]
     Dosage: UNK
  5. IMODIUM A-D [Concomitant]
     Dosage: UNK
  6. LANTUS SOLOSTAR [Concomitant]
     Dosage: UNK
  7. NOVOLOG FLEXPEN [Concomitant]
     Dosage: UNK
  8. PRIMIDONE [Concomitant]
     Dosage: UNK

REACTIONS (2)
  - Disease progression [Unknown]
  - Renal cell carcinoma [Unknown]
